FAERS Safety Report 8776361 (Version 1)
Quarter: 2012Q4

REPORT INFORMATION
  Report Type: 
  Country: CH (occurrence: CH)
  Receive Date: 20120910
  Receipt Date: 20120910
  Transmission Date: 20130627
  Serious: Yes (Hospitalization)
  Sender: FDA-Public Use
  Company Number: CH-PFIZER INC-2012219561

PATIENT
  Age: 81 Year
  Sex: Male
  Weight: 56 kg

DRUGS (11)
  1. LYRICA [Suspect]
     Dosage: 25 mg, 3x/day
     Route: 048
     Dates: start: 20120606, end: 20120619
  2. VIREAD [Suspect]
     Indication: HIV INFECTION
     Dosage: 245 mg, alternate day
     Route: 048
     Dates: start: 2003, end: 20120621
  3. NEXIUM [Suspect]
     Dosage: 20 mg, 1x/day
     Route: 048
     Dates: start: 20120606, end: 20120619
  4. AUGMENTIN [Suspect]
     Indication: STAPHYLOCOCCAL ABSCESS
     Dosage: UNK
     Route: 042
     Dates: start: 20120525
  5. AUGMENTIN [Suspect]
     Dosage: 625 mg, 3x/day
     Route: 048
     Dates: end: 20120610
  6. KALETRA [Concomitant]
     Indication: HIV INFECTION
     Dosage: 1 DF, 4x/day
     Route: 048
     Dates: start: 2003, end: 20120621
  7. MARCOUMAR [Concomitant]
     Dosage: according to INR
     Route: 048
     Dates: start: 20120224
  8. TEMESTA [Concomitant]
     Dosage: 0.5 DF, 1x/day
     Route: 048
  9. PERENTEROL [Concomitant]
     Dosage: 1 DF, 3x/day
     Route: 048
     Dates: start: 20120606, end: 20120619
  10. MAGNESIUM DIASPORAL [Concomitant]
     Dosage: 1 DF, 1x/day
     Route: 048
     Dates: start: 20120606, end: 20120619
  11. CLEXANE [Concomitant]
     Dosage: 80 mg, 1x/day
     Route: 058
     Dates: start: 20120606, end: 20120619

REACTIONS (4)
  - Renal failure chronic [Recovering/Resolving]
  - Renal tubular necrosis [Unknown]
  - Tremor [Unknown]
  - Muscle contractions involuntary [Unknown]
